FAERS Safety Report 18576018 (Version 1)
Quarter: 2020Q4

REPORT INFORMATION
  Report Type: Report from Study
  Country: IT (occurrence: IT)
  Receive Date: 20201203
  Receipt Date: 20201203
  Transmission Date: 20210114
  Serious: Yes (Other)
  Sender: FDA-Public Use
  Company Number: NVSC2020IT321812

PATIENT

DRUGS (2)
  1. ASPIRIN. [Concomitant]
     Active Substance: ASPIRIN
     Indication: FOETAL EXPOSURE DURING PREGNANCY
     Dosage: 100 MG, QD(16 WEEK)(MATERNAL EXPOSURE DURING PREGNANCY)
     Route: 064
     Dates: start: 20200307
  2. ERELZI [Suspect]
     Active Substance: ETANERCEPT-SZZS
     Indication: FOETAL EXPOSURE DURING PREGNANCY
     Dosage: 50 MG(MATERNAL PREGNANCY DURING PREGNANCY)
     Route: 064
     Dates: start: 20180725

REACTIONS (2)
  - Foetal exposure during pregnancy [Unknown]
  - Premature baby [Unknown]
